FAERS Safety Report 15160462 (Version 1)
Quarter: 2018Q3

REPORT INFORMATION
  Report Type: Report from Study
  Country: US (occurrence: US)
  Receive Date: 20180718
  Receipt Date: 20180718
  Transmission Date: 20181010
  Serious: Yes (Other)
  Sender: FDA-Public Use
  Company Number: PHEH2018US028413

PATIENT
  Sex: Male

DRUGS (2)
  1. COSENTYX [Suspect]
     Active Substance: SECUKINUMAB
     Indication: ANKYLOSING SPONDYLITIS
     Dosage: 150 MG, QMO
     Route: 058
  2. COSENTYX [Suspect]
     Active Substance: SECUKINUMAB
     Indication: RHEUMATOID ARTHRITIS
     Dosage: 150 MG, QW ,EVERY WEEK FOR 3 WEEKS AND THEN 4 AS DIRECTED
     Route: 058
     Dates: start: 201806

REACTIONS (8)
  - Arthralgia [Unknown]
  - Pain in extremity [Unknown]
  - Glaucoma [Unknown]
  - Intraocular pressure test abnormal [Unknown]
  - Peripheral swelling [Unknown]
  - Blepharitis [Unknown]
  - Product use in unapproved indication [Unknown]
  - Neck pain [Unknown]
